FAERS Safety Report 5568638-6 (Version None)
Quarter: 2007Q4

REPORT INFORMATION
  Report Type: 
  Country: None (occurrence: None)
  Receive Date: 20071220
  Receipt Date: 20071212
  Transmission Date: 20080405
  Serious: Yes (Other)
  Sender: FDA-Public Use
  Company Number: US-ROCHE-487603

PATIENT
  Age: 30 Year
  Sex: Female

DRUGS (3)
  1. ACCUTANE [Suspect]
     Indication: DRUG USE FOR UNKNOWN INDICATION
     Route: 065
     Dates: start: 20070101, end: 20070201
  2. ACCUTANE [Suspect]
     Route: 065
     Dates: start: 20061101, end: 20061201
  3. BIRTH CONTROL PILL [Concomitant]
     Route: 065

REACTIONS (1)
  - ABORTION INDUCED [None]
